FAERS Safety Report 14542517 (Version 1)
Quarter: 2018Q1

REPORT INFORMATION
  Report Type: Spontaneous
  Country: IT (occurrence: IT)
  Receive Date: 20180216
  Receipt Date: 20180216
  Transmission Date: 20180509
  Serious: Yes (Other)
  Sender: FDA-Public Use
  Company Number: IT-OTSUKA-DJ201407435

PATIENT
  Age: 11 Year
  Sex: Male

DRUGS (3)
  1. ABILIFY [Suspect]
     Active Substance: ARIPIPRAZOLE
     Indication: TOURETTE^S DISORDER
     Dosage: 10 MG, UNK
     Route: 048
     Dates: start: 20061126
  2. CLONAZEPAM. [Suspect]
     Active Substance: CLONAZEPAM
     Indication: TOURETTE^S DISORDER
     Dosage: 15 DF, UNK
     Route: 048
     Dates: start: 20120608
  3. PAROXETINE. [Suspect]
     Active Substance: PAROXETINE
     Indication: TOURETTE^S DISORDER
     Dosage: 20 MG, QD
     Route: 048
     Dates: start: 20140608

REACTIONS (2)
  - Off label use [Unknown]
  - Bundle branch block [Unknown]

NARRATIVE: CASE EVENT DATE: 20061126
